FAERS Safety Report 18554764 (Version 2)
Quarter: 2021Q1

REPORT INFORMATION
  Report Type: Report from Study
  Country: US (occurrence: US)
  Receive Date: 20201127
  Receipt Date: 20210201
  Transmission Date: 20210419
  Serious: No
  Sender: FDA-Public Use
  Company Number: NVSC2020US312275

PATIENT
  Sex: Male

DRUGS (1)
  1. MAYZENT [Suspect]
     Active Substance: SIPONIMOD
     Indication: PRODUCT USED FOR UNKNOWN INDICATION
     Dosage: 2 MG, QD
     Route: 048
     Dates: end: 20201218

REACTIONS (6)
  - Lymphocyte count decreased [Unknown]
  - Feeling abnormal [Unknown]
  - Dizziness [Unknown]
  - Fatigue [Unknown]
  - Heart rate decreased [Unknown]
  - Lethargy [Unknown]
